FAERS Safety Report 4553532-X (Version None)
Quarter: 2004Q4

REPORT INFORMATION
  Report Type: 
  Country: None (occurrence: None)
  Receive Date: 20041227
  Receipt Date: 20041022
  Transmission Date: 20050328
  Serious: No
  Sender: FDA-Public Use
  Company Number: 04P-163-0278523-00

PATIENT
  Age: 58 Year
  Sex: Female
  Weight: 65.7716 kg

DRUGS (7)
  1. HUMIRA [Suspect]
     Indication: RHEUMATOID ARTHRITIS
     Dosage: 40 MG, 1 IN 2 WK, SUBCUTANEOUS; SEE IMAGE
     Route: 058
     Dates: start: 20040501, end: 20041015
  2. HUMIRA [Suspect]
     Indication: RHEUMATOID ARTHRITIS
     Dosage: 40 MG, 1 IN 2 WK, SUBCUTANEOUS; SEE IMAGE
     Route: 058
     Dates: start: 20041022
  3. SODIUM AUROTHIOMALATE [Concomitant]
  4. LEVOTHYROXINE SODIUM [Concomitant]
  5. SERETIDE MITE [Concomitant]
  6. MESALAMINE [Concomitant]
  7. CHLORPHENIRAMINE MALEATE [Concomitant]

REACTIONS (3)
  - ANAEMIA [None]
  - RHEUMATOID ARTHRITIS [None]
  - SINUSITIS [None]
